FAERS Safety Report 5764780-5 (Version None)
Quarter: 2008Q2

REPORT INFORMATION
  Report Type: 
  Country: None (occurrence: None)
  Receive Date: 20080610
  Receipt Date: 20080610
  Transmission Date: 20081010
  Serious: No
  Sender: FDA-Public Use
  Company Number: None

PATIENT
  Age: 63 Year
  Sex: Female
  Weight: 74.8435 kg

DRUGS (4)
  1. MIDAZOLAM HCL [Suspect]
     Indication: SEDATIVE THERAPY
     Dosage: 5MG IV
     Route: 042
     Dates: start: 20080530
  2. MIDAZOLAM HCL [Suspect]
     Indication: SURGERY
     Dosage: 5MG IV
     Route: 042
     Dates: start: 20080530
  3. HYDROMORPHONE HCL [Suspect]
     Indication: SEDATIVE THERAPY
     Dosage: 5MG  IV
     Route: 042
     Dates: start: 20080530
  4. HYDROMORPHONE HCL [Suspect]
     Indication: SURGERY
     Dosage: 5MG  IV
     Route: 042
     Dates: start: 20080530

REACTIONS (3)
  - INAPPROPRIATE SCHEDULE OF DRUG ADMINISTRATION [None]
  - MEDICATION ERROR [None]
  - RESPIRATORY RATE DECREASED [None]
